FAERS Safety Report 4379384-9 (Version None)
Quarter: 2004Q2

REPORT INFORMATION
  Report Type: 
  Country: None (occurrence: None)
  Receive Date: 20040617
  Receipt Date: 20040608
  Transmission Date: 20050107
  Serious: Yes (Other)
  Sender: FDA-Public Use
  Company Number: GB-JNJFOC-20040602026

PATIENT
  Sex: Female

DRUGS (9)
  1. REMICADE [Suspect]
     Indication: RHEUMATOID ARTHRITIS
     Route: 042
  2. METHOTREXATE [Concomitant]
  3. CYCLOSPORINE [Concomitant]
  4. LOSEC [Concomitant]
  5. AMITRIPTYLINE HCL [Concomitant]
  6. FOSAMAX [Concomitant]
  7. FOLIC ACID [Concomitant]
  8. CALCICHEW [Concomitant]
     Route: 065
  9. ACETAMINOPHEN [Concomitant]
     Route: 065

REACTIONS (1)
  - DIFFUSE LARGE B-CELL LYMPHOMA [None]
